FAERS Safety Report 23849864 (Version 1)
Quarter: 2024Q2

REPORT INFORMATION
  Report Type: Spontaneous
  Country: US (occurrence: None)
  Receive Date: 20240513
  Receipt Date: 20240513
  Transmission Date: 20240716
  Serious: Yes (Hospitalization)
  Sender: FDA-Public Use
  Company Number: None

PATIENT
  Age: 90 Year
  Sex: Male
  Weight: 72 kg

DRUGS (1)
  1. APIXABAN [Suspect]
     Active Substance: APIXABAN
     Indication: Atrial fibrillation
     Dosage: FREQUENCY : TWICE A DAY;?
     Route: 048
     Dates: start: 20190109, end: 20190220

REACTIONS (2)
  - Haemorrhage [None]
  - Gastrointestinal haemorrhage [None]

NARRATIVE: CASE EVENT DATE: 20190308
